FAERS Safety Report 14753763 (Version 2)
Quarter: 2018Q2

REPORT INFORMATION
  Report Type: Spontaneous
  Country: JP (occurrence: JP)
  Receive Date: 20180412
  Receipt Date: 20180619
  Transmission Date: 20180711
  Serious: Yes (Other)
  Sender: FDA-Public Use
  Company Number: JP-BAYER-2018-069384

PATIENT
  Age: 68 Year
  Sex: Female

DRUGS (1)
  1. STIVARGA [Suspect]
     Active Substance: REGORAFENIB
     Dosage: DAILY DOSE 120 MG
     Route: 048
     Dates: start: 20180307

REACTIONS (6)
  - Nausea [None]
  - Abdominal pain upper [None]
  - Diarrhoea [None]
  - Intestinal metastasis [None]
  - Decreased appetite [None]
  - Metastases to lung [None]

NARRATIVE: CASE EVENT DATE: 2018
